FAERS Safety Report 17276412 (Version 1)
Quarter: 2020Q1

REPORT INFORMATION
  Report Type: Spontaneous
  Country: US (occurrence: US)
  Receive Date: 20200116
  Receipt Date: 20200116
  Transmission Date: 20200409
  Serious: No
  Sender: FDA-Public Use
  Company Number: US-ASTRAZENECA-2019SF84126

PATIENT
  Age: 20835 Day
  Sex: Female
  Weight: 164.2 kg

DRUGS (11)
  1. BYDUREON BCISE [Suspect]
     Active Substance: EXENATIDE
     Indication: TYPE 2 DIABETES MELLITUS
     Route: 058
     Dates: start: 20191217
  2. GLIMIPRIDE [Concomitant]
     Active Substance: GLIMEPIRIDE
  3. DULOXETINE. [Concomitant]
     Active Substance: DULOXETINE
  4. LISINOPRIL. [Concomitant]
     Active Substance: LISINOPRIL
  5. NORCO [Concomitant]
     Active Substance: ACETAMINOPHEN\HYDROCODONE BITARTRATE
  6. JANUVIA [Concomitant]
     Active Substance: SITAGLIPTIN PHOSPHATE
  7. SIMVASTATIN. [Concomitant]
     Active Substance: SIMVASTATIN
  8. TIZANADINE [Concomitant]
     Active Substance: TIZANIDINE
  9. OVER THE COUNTER MEDICINE [Concomitant]
     Active Substance: UNSPECIFIED INGREDIENT
     Indication: BREAKTHROUGH PAIN
  10. OTC ALLERGY MEDICATION [Concomitant]
  11. RANIDITINE [Concomitant]

REACTIONS (3)
  - Injection site erythema [Unknown]
  - Device issue [Unknown]
  - Incorrect dose administered by device [Unknown]

NARRATIVE: CASE EVENT DATE: 20191217
